FAERS Safety Report 6386564-X (Version None)
Quarter: 2009Q4

REPORT INFORMATION
  Report Type: 
  Country: None (occurrence: None)
  Receive Date: 20091002
  Receipt Date: 20090408
  Transmission Date: 20100525
  Serious: No
  Sender: FDA-Public Use
  Company Number: US-ASTRAZENECA-2009UW08818

PATIENT
  Age: 60 Year
  Sex: Female

DRUGS (3)
  1. ARIMIDEX [Suspect]
     Indication: BREAST CANCER
     Route: 048
     Dates: start: 20081226
  2. I THYROXINE [Concomitant]
  3. BONIVA [Concomitant]

REACTIONS (3)
  - BLOOD CALCIUM DECREASED [None]
  - OSTEOPENIA [None]
  - OSTEOPOROSIS [None]
